FAERS Safety Report 8572473-4 (Version None)
Quarter: 2012Q3

REPORT INFORMATION
  Report Type: 
  Country: None (occurrence: None)
  Receive Date: 20120806
  Receipt Date: 20120726
  Transmission Date: 20120928
  Serious: Yes (Hospitalization)
  Sender: FDA-Public Use
  Company Number: ES-ASTRAZENECA-2012SE48644

PATIENT
  Age: 56 Year
  Sex: Male
  Weight: 56 kg

DRUGS (4)
  1. VANDETANIB [Suspect]
     Indication: THYROID CANCER
     Route: 048
     Dates: start: 20110920, end: 20120607
  2. DURAGESIC-100 [Concomitant]
     Indication: PAIN
     Route: 062
  3. LEVOTHYROXINE SODIUM [Concomitant]
     Indication: HYPOTHYROIDISM
     Route: 048
  4. OMEPRAZOLE [Concomitant]
     Indication: GASTRITIS PROPHYLAXIS
     Route: 048

REACTIONS (4)
  - HYPOCALCAEMIA [None]
  - RENAL FAILURE [None]
  - CONDITION AGGRAVATED [None]
  - HYPOPARATHYROIDISM [None]
